FAERS Safety Report 18588336 (Version 1)
Quarter: 2020Q4

REPORT INFORMATION
  Report Type: Spontaneous
  Country: US (occurrence: US)
  Receive Date: 20201207
  Receipt Date: 20201207
  Transmission Date: 20210114
  Serious: No
  Sender: FDA-Public Use
  Company Number: US-JUBILANT CADISTA PHARMACEUTICALS-2020JUB00001

PATIENT
  Age: 48 Year
  Sex: Male
  Weight: 86.17 kg

DRUGS (6)
  1. METHYLPREDNISOLONE. [Suspect]
     Active Substance: METHYLPREDNISOLONE
     Indication: LIMB INJURY
     Dosage: 24 MG, 1X/DAY
     Route: 048
     Dates: start: 20191229, end: 20191229
  2. METHYLPREDNISOLONE. [Suspect]
     Active Substance: METHYLPREDNISOLONE
     Dosage: 8 TABLETS, 1X/DAY
     Route: 048
     Dates: start: 20200102, end: 20200102
  3. METHYLPREDNISOLONE. [Suspect]
     Active Substance: METHYLPREDNISOLONE
     Dosage: 20 MG, 1X/DAY
     Route: 048
     Dates: start: 20191230, end: 20191230
  4. METHYLPREDNISOLONE. [Suspect]
     Active Substance: METHYLPREDNISOLONE
     Dosage: 4 TABLETS, 1X/DAY
     Route: 048
     Dates: start: 20200103, end: 20200103
  5. METHYLPREDNISOLONE. [Suspect]
     Active Substance: METHYLPREDNISOLONE
     Dosage: 16 TABLETS, 1X/DAY
     Route: 048
     Dates: start: 20191231, end: 20191231
  6. METHYLPREDNISOLONE. [Suspect]
     Active Substance: METHYLPREDNISOLONE
     Dosage: 12 MG, 1X/DAY
     Route: 048
     Dates: start: 20200101, end: 20200101

REACTIONS (3)
  - Arthralgia [Recovering/Resolving]
  - Product use in unapproved indication [Recovered/Resolved]
  - Swelling [Not Recovered/Not Resolved]

NARRATIVE: CASE EVENT DATE: 20200102
